FAERS Safety Report 7048486-0 (Version None)
Quarter: 2010Q4

REPORT INFORMATION
  Report Type: 
  Country: None (occurrence: None)
  Receive Date: 20101015
  Receipt Date: 20101015
  Transmission Date: 20110411
  Serious: Yes (Hospitalization)
  Sender: FDA-Public Use
  Company Number: None

PATIENT
  Sex: Female
  Weight: 54 kg

DRUGS (2)
  1. CARBOPLATIN [Suspect]
     Dosage: 721 MG
     Dates: end: 20101004
  2. TAXOL [Suspect]
     Dosage: 252 MG
     Dates: end: 20101011

REACTIONS (4)
  - BLOOD CREATININE INCREASED [None]
  - HYPOPHAGIA [None]
  - OEDEMA [None]
  - VOMITING [None]
